FAERS Safety Report 26114113 (Version 1)
Quarter: 2025Q4

REPORT INFORMATION
  Report Type: Spontaneous
  Country: IL (occurrence: IL)
  Receive Date: 20251202
  Receipt Date: 20251202
  Transmission Date: 20260117
  Serious: Yes (Other)
  Sender: NOVO NORDISK
  Company Number: IL-NOVOPROD-1569846

PATIENT
  Sex: Female
  Weight: 90 kg

DRUGS (2)
  1. WEGOVY [Suspect]
     Active Substance: SEMAGLUTIDE
     Dosage: 45 CLICKS
     Route: 058
  2. WEGOVY [Suspect]
     Active Substance: SEMAGLUTIDE
     Indication: Product used for unknown indication
     Dosage: 1 MG, QW, 40 CLICKS
     Route: 058

REACTIONS (7)
  - Abdominal pain upper [Unknown]
  - Dizziness [Unknown]
  - Device leakage [Unknown]
  - Incorrect dose administered by device [Unknown]
  - Gastritis [Unknown]
  - Vomiting [Unknown]
  - Decreased appetite [Unknown]
